FAERS Safety Report 15868324 (Version 1)
Quarter: 2019Q1

REPORT INFORMATION
  Report Type: Report from Study
  Country: US (occurrence: US)
  Receive Date: 20190125
  Receipt Date: 20190125
  Transmission Date: 20190417
  Serious: Yes (Hospitalization, Other)
  Sender: FDA-Public Use
  Company Number: US-BAYER-2019-013167

PATIENT

DRUGS (2)
  1. STIVARGA [Suspect]
     Active Substance: REGORAFENIB
     Indication: COLON CANCER
     Dosage: UNK
     Route: 048
  2. STIVARGA [Suspect]
     Active Substance: REGORAFENIB
     Indication: COLON CANCER
     Dosage: UNK
     Route: 048

REACTIONS (7)
  - Gait inability [None]
  - Tachycardia [None]
  - Coordination abnormal [None]
  - Blister [None]
  - Pain in extremity [None]
  - Cardiomegaly [None]
  - Asthenia [None]

NARRATIVE: CASE EVENT DATE: 201612
